FAERS Safety Report 17093093 (Version 1)
Quarter: 2019Q4

REPORT INFORMATION
  Report Type: Report from Study
  Country: None (occurrence: CO)
  Receive Date: 20191129
  Receipt Date: 20191129
  Transmission Date: 20200122
  Serious: Yes (Hospitalization)
  Sender: FDA-Public Use
  Company Number: CO-ABBVIE-19K-036-3174191-00

PATIENT
  Sex: Female
  Weight: 51 kg

DRUGS (4)
  1. HYDROCODONE [Suspect]
     Active Substance: HYDROCODONE
     Indication: PRODUCT USED FOR UNKNOWN INDICATION
     Route: 065
  2. MORPHINE [Suspect]
     Active Substance: MORPHINE
     Indication: PRODUCT USED FOR UNKNOWN INDICATION
     Route: 065
  3. TRAMADOL. [Concomitant]
     Active Substance: TRAMADOL
     Indication: ANKYLOSING SPONDYLITIS
     Route: 048
     Dates: start: 201911
  4. HUMIRA [Suspect]
     Active Substance: ADALIMUMAB
     Indication: ANKYLOSING SPONDYLITIS
     Route: 058
     Dates: start: 20181016, end: 20190917

REACTIONS (10)
  - Muscle rigidity [Recovered/Resolved]
  - Gastritis [Not Recovered/Not Resolved]
  - Back pain [Not Recovered/Not Resolved]
  - Hospitalisation [Unknown]
  - Inflammation [Not Recovered/Not Resolved]
  - Chest pain [Not Recovered/Not Resolved]
  - Adverse event [Recovered/Resolved]
  - Musculoskeletal stiffness [Unknown]
  - Pain [Not Recovered/Not Resolved]
  - Unevaluable event [Unknown]

NARRATIVE: CASE EVENT DATE: 2019
